FAERS Safety Report 23582846 (Version 2)
Quarter: 2024Q1

REPORT INFORMATION
  Report Type: Spontaneous
  Country: DE (occurrence: DE)
  Receive Date: 20240301
  Receipt Date: 20240311
  Transmission Date: 20240409
  Serious: Yes (Life-Threatening, Hospitalization, Other)
  Sender: FDA-Public Use
  Company Number: DE-ABBVIE-5659919

PATIENT
  Sex: Male

DRUGS (4)
  1. SKYRIZI [Suspect]
     Active Substance: RISANKIZUMAB-RZAA
     Indication: Crohn^s disease
     Dosage: FREQUENCY TEXT: 3 TIMES
     Route: 042
     Dates: start: 202312, end: 202402
  2. ANAKINRA [Concomitant]
     Active Substance: ANAKINRA
     Indication: Product used for unknown indication
  3. ETOPOSIDE [Concomitant]
     Active Substance: ETOPOSIDE
     Indication: Product used for unknown indication
  4. CORTISONE [Concomitant]
     Active Substance: CORTISONE
     Indication: Product used for unknown indication

REACTIONS (12)
  - Multiple organ dysfunction syndrome [Unknown]
  - Bone marrow tumour cell infiltration [Unknown]
  - Hyperbilirubinaemia [Unknown]
  - Haemophagocytic lymphohistiocytosis [Unknown]
  - Necrosis [Unknown]
  - Immune thrombocytopenia [Unknown]
  - T-cell lymphoma [Unknown]
  - Anaemia [Unknown]
  - Liver disorder [Unknown]
  - Bicytopenia [Unknown]
  - Hepatic function abnormal [Unknown]
  - Toxicity to various agents [Unknown]

NARRATIVE: CASE EVENT DATE: 20240201
